FAERS Safety Report 24740841 (Version 1)
Quarter: 2024Q4

REPORT INFORMATION
  Report Type: Report from Study
  Country: FR (occurrence: FR)
  Receive Date: 20241217
  Receipt Date: 20241217
  Transmission Date: 20250115
  Serious: Yes (Death)
  Sender: ROCHE
  Company Number: FR-ROCHE-10000152440

PATIENT
  Age: 51 Year
  Sex: Female

DRUGS (7)
  1. ADO-TRASTUZUMAB EMTANSINE [Suspect]
     Active Substance: ADO-TRASTUZUMAB EMTANSINE
     Indication: Breast cancer
     Route: 042
  2. TRASTUZUMAB [Concomitant]
     Active Substance: TRASTUZUMAB
     Dates: start: 2016
  3. TRASTUZUMAB [Concomitant]
     Active Substance: TRASTUZUMAB
     Dates: start: 2017
  4. TRASTUZUMAB [Concomitant]
     Active Substance: TRASTUZUMAB
     Dates: start: 2015
  5. PERTUZUMAB [Concomitant]
     Active Substance: PERTUZUMAB
     Dates: start: 2017
  6. PERTUZUMAB [Concomitant]
     Active Substance: PERTUZUMAB
     Dates: start: 2015
  7. PACLITAXEL [Concomitant]
     Active Substance: PACLITAXEL
     Dates: start: 2017

REACTIONS (5)
  - Pulmonary arterial hypertension [Fatal]
  - Respiratory distress [Fatal]
  - Right ventricular failure [Fatal]
  - Respiratory failure [Fatal]
  - Circulatory collapse [Fatal]
